FAERS Safety Report 4729042-3 (Version None)
Quarter: 2005Q3

REPORT INFORMATION
  Report Type: 
  Country: None (occurrence: None)
  Receive Date: 20050729
  Receipt Date: 20050215
  Transmission Date: 20060218
  Serious: No
  Sender: FDA-Public Use
  Company Number: US-GLAXOSMITHKLINE-A0545716A

PATIENT
  Age: 35 Year
  Sex: Female

DRUGS (4)
  1. IMITREX [Suspect]
     Indication: MIGRAINE
     Dosage: 100MG AS REQUIRED
     Route: 048
     Dates: start: 20041201
  2. WELLBUTRIN XL [Concomitant]
  3. LITHIUM [Concomitant]
  4. PREVACID [Concomitant]

REACTIONS (1)
  - DRUG INEFFECTIVE [None]
